FAERS Safety Report 11723945 (Version 1)
Quarter: 2015Q4

REPORT INFORMATION
  Report Type: Spontaneous
  Country: FR (occurrence: FR)
  Receive Date: 20151111
  Receipt Date: 20151111
  Transmission Date: 20160304
  Serious: Yes (Life-Threatening, Hospitalization, Other)
  Sender: FDA-Public Use
  Company Number: FR-SA-2015SA173237

PATIENT
  Age: 59 Year
  Sex: Male

DRUGS (4)
  1. PRAZEPAM [Suspect]
     Active Substance: PRAZEPAM
     Dosage: 1 GRAM OF PRAZEPAM IN TOTAL (100 DF, 1 IN 1 SINGLE DOSE)
     Route: 048
     Dates: start: 20150715, end: 20150715
  2. XEROQUEL LP [Suspect]
     Active Substance: QUETIAPINE FUMARATE
     Dosage: PROLONGED RELEASE TABLET?40 DF
     Route: 048
     Dates: start: 20150715, end: 20150715
  3. STILNOX [Suspect]
     Active Substance: ZOLPIDEM TARTRATE
     Dosage: 280 MG OF ZOLPIDEM (28 DF, 1 IN 1 SINGLE DOSE)
     Route: 048
     Dates: start: 20150715, end: 20150715
  4. LAROXYL [Suspect]
     Active Substance: AMITRIPTYLINE
     Dosage: 5 GRAMS OF AMITRIPTYLINE IN TOTAL (100 DF , 1 IN 1 SINGLE DOSE)
     Route: 048
     Dates: start: 20150715, end: 20150715

REACTIONS (7)
  - Blood creatine phosphokinase increased [Recovered/Resolved]
  - Electrocardiogram abnormal [Recovered/Resolved]
  - Coma scale abnormal [Recovered/Resolved]
  - Toxicity to various agents [Recovered/Resolved]
  - Coma [Recovered/Resolved]
  - Tachycardia [Recovered/Resolved]
  - Poisoning deliberate [Recovered/Resolved]

NARRATIVE: CASE EVENT DATE: 20150715
